FAERS Safety Report 12170711 (Version 2)
Quarter: 2016Q1

REPORT INFORMATION
  Report Type: Spontaneous
  Country: US (occurrence: US)
  Receive Date: 20160311
  Receipt Date: 20160322
  Transmission Date: 20160526
  Serious: No
  Sender: FDA-Public Use
  Company Number: US-BAYER-2016-039227

PATIENT
  Age: 76 Year
  Sex: Female
  Weight: 56.69 kg

DRUGS (3)
  1. FLAXSEED [Concomitant]
     Active Substance: FLAX SEED
  2. CLARITIN [Suspect]
     Active Substance: LORATADINE
     Indication: MECHANICAL URTICARIA
     Dosage: 1 DF, QD
     Route: 048
     Dates: start: 20151111, end: 20160225
  3. MAGNESIUM CITRATE. [Concomitant]
     Active Substance: MAGNESIUM CITRATE

REACTIONS (7)
  - Nail disorder [Not Recovered/Not Resolved]
  - Therapeutic response unexpected [Not Recovered/Not Resolved]
  - Onychoclasis [Not Recovered/Not Resolved]
  - Off label use [None]
  - Onychalgia [Not Recovered/Not Resolved]
  - Product use issue [None]
  - Nail disorder [None]

NARRATIVE: CASE EVENT DATE: 201511
